FAERS Safety Report 6409156-2 (Version None)
Quarter: 2009Q4

REPORT INFORMATION
  Report Type: 
  Country: None (occurrence: None)
  Receive Date: 20091021
  Receipt Date: 20091012
  Transmission Date: 20100525
  Serious: Yes (Hospitalization)
  Sender: FDA-Public Use
  Company Number: PHHO2009CH12565

PATIENT
  Sex: Male

DRUGS (1)
  1. RAD 666 RAD+TAB [Suspect]
     Indication: PROSTATE CANCER
     Dosage: 10 MG DAILY
     Route: 048
     Dates: start: 20090919, end: 20091009

REACTIONS (3)
  - ARTHRITIS [None]
  - ARTHROSCOPY [None]
  - INFECTION [None]
